FAERS Safety Report 21400428 (Version 1)
Quarter: 2022Q3

REPORT INFORMATION
  Report Type: Spontaneous
  Country: US (occurrence: None)
  Receive Date: 20220930
  Receipt Date: 20220930
  Transmission Date: 20221027
  Serious: No
  Sender: FDA-Public Use
  Company Number: None

PATIENT
  Age: 38 Year
  Sex: Female
  Weight: 58.97 kg

DRUGS (2)
  1. ENBREL [Suspect]
     Active Substance: ETANERCEPT
     Indication: Rheumatoid arthritis
     Dosage: FREQUENCY : UNKNOWN;?
     Route: 058
     Dates: start: 202112
  2. ENBREL [Suspect]
     Active Substance: ETANERCEPT
     Indication: Osteoporosis

REACTIONS (2)
  - Malaise [None]
  - Therapy interrupted [None]
